FAERS Safety Report 5504200-9 (Version None)
Quarter: 2007Q4

REPORT INFORMATION
  Report Type: 
  Country: None (occurrence: None)
  Receive Date: 20071101
  Receipt Date: 20071026
  Transmission Date: 20080405
  Serious: Yes (Hospitalization)
  Sender: FDA-Public Use
  Company Number: B0491771A

PATIENT
  Age: 72 Year
  Sex: Female
  Weight: 44 kg

DRUGS (13)
  1. VALTREX [Suspect]
     Indication: HERPES ZOSTER
     Dosage: 1000MG THREE TIMES PER DAY
     Route: 048
     Dates: start: 20050904, end: 20070911
  2. VOLTAREN [Suspect]
     Indication: PAIN
     Dosage: 25MG PER DAY
     Route: 048
     Dates: start: 20070904
  3. TICLOPIDINE HCL [Concomitant]
     Dosage: 100MG PER DAY
     Route: 048
  4. UNKNOWN DRUG [Concomitant]
     Indication: HYPERTENSION
     Dosage: 50MG PER DAY
     Route: 048
     Dates: start: 20060504
  5. TRICHLORMETHIAZIDE [Concomitant]
     Indication: HYPERTENSION
     Dosage: 2MG PER DAY
     Route: 048
  6. LIPITOR [Concomitant]
     Dosage: 10MG PER DAY
     Route: 048
     Dates: start: 20060417
  7. DIOVAN [Concomitant]
     Indication: HYPERTENSION
     Dosage: 80MG PER DAY
     Route: 048
     Dates: start: 20061113
  8. AMLODIPINE [Concomitant]
     Indication: HYPERTENSION
     Dosage: 5MG PER DAY
     Route: 048
     Dates: start: 20070113
  9. ZOLPIDEM [Concomitant]
     Indication: INSOMNIA
     Route: 048
     Dates: start: 20050705
  10. PL [Concomitant]
     Indication: NASOPHARYNGITIS
     Route: 048
     Dates: start: 20070904
  11. UNKNOWN DRUG [Concomitant]
     Indication: NASOPHARYNGITIS
     Route: 048
     Dates: start: 20070904
  12. BISOLVON [Concomitant]
     Indication: NASOPHARYNGITIS
     Route: 048
     Dates: start: 20070904
  13. TICLOPIDINE HCL [Concomitant]
     Route: 048

REACTIONS (12)
  - ABDOMINAL PAIN UPPER [None]
  - ACUTE HEPATIC FAILURE [None]
  - ALANINE AMINOTRANSFERASE INCREASED [None]
  - BLOOD CREATININE INCREASED [None]
  - BLOOD UREA INCREASED [None]
  - BLOOD URIC ACID INCREASED [None]
  - CYSTITIS [None]
  - DIARRHOEA [None]
  - FEELING ABNORMAL [None]
  - RENAL FAILURE ACUTE [None]
  - THIRST [None]
  - VOMITING [None]
